FAERS Safety Report 8691236 (Version 3)
Quarter: 2013Q1

REPORT INFORMATION
  Report Type: Spontaneous
  Country: BR (occurrence: BR)
  Receive Date: 20120730
  Receipt Date: 20130206
  Transmission Date: 20140127
  Serious: Yes (Hospitalization, Other)
  Sender: FDA-Public Use
  Company Number: PHHY2012BR064727

PATIENT
  Age: 59 Year
  Sex: Male

DRUGS (3)
  1. GALVUS [Suspect]
     Indication: DIABETES MELLITUS
     Dosage: 1 DF, DAILY
     Route: 048
  2. DIOVAN AMLO FIX [Suspect]
     Indication: HYPERTENSION
     Dosage: 1 DF (VALS 320 MG, AMLO 5 MG),DAILY
     Dates: end: 201207
  3. DIOVAN HCT [Suspect]
     Route: 048
     Dates: start: 201201

REACTIONS (3)
  - Cardiomegaly [Unknown]
  - Pneumonia [Unknown]
  - Blood pressure increased [Unknown]
